FAERS Safety Report 5147965-0 (Version None)
Quarter: 2006Q4

REPORT INFORMATION
  Report Type: 
  Country: None (occurrence: None)
  Receive Date: 20061106
  Receipt Date: 20061025
  Transmission Date: 20070319
  Serious: Yes (Hospitalization)
  Sender: FDA-Public Use
  Company Number: CLOF-10319

PATIENT
  Age: 56 Year
  Sex: Female
  Weight: 69.7 kg

DRUGS (16)
  1. CLOFARABINE [Suspect]
     Indication: MYELOID LEUKAEMIA
     Dosage: 400 MG/M2 IV
     Route: 042
     Dates: start: 20060805, end: 20060807
  2. CLOFARABINE [Suspect]
     Indication: MYELOID LEUKAEMIA
     Dosage: 400 MG/M2 IV
     Route: 042
     Dates: start: 20060812, end: 20060814
  3. CYTOXAN [Suspect]
     Indication: MYELOID LEUKAEMIA
     Dates: start: 20060805
  4. BLOOD TRANSFUSION [Suspect]
     Indication: DRUG USE FOR UNKNOWN INDICATION
  5. TOPROL-XL [Concomitant]
  6. PROTONIX [Concomitant]
  7. AMBIEN [Concomitant]
  8. ATIVAN [Concomitant]
  9. MSIR [Concomitant]
  10. ACETAMINOPHEN [Concomitant]
  11. ALLOPURINOL [Concomitant]
  12. HYDROCORTISONE [Concomitant]
  13. NORFLOXACIN [Concomitant]
  14. VALTREX [Concomitant]
  15. DAPSONE [Concomitant]
  16. AMOXICILLIN [Concomitant]

REACTIONS (12)
  - BONE MARROW FAILURE [None]
  - CONDITION AGGRAVATED [None]
  - FEBRILE NEUTROPENIA [None]
  - HAEMOLYSIS [None]
  - HEPATITIS [None]
  - LIP DRY [None]
  - LUNG INFILTRATION [None]
  - NAUSEA [None]
  - PLEURITIC PAIN [None]
  - PNEUMONIA FUNGAL [None]
  - TRANSFUSION REACTION [None]
  - ULTRASOUND ABDOMEN ABNORMAL [None]
